FAERS Safety Report 6700377-8 (Version None)
Quarter: 2010Q2

REPORT INFORMATION
  Report Type: 
  Country: None (occurrence: None)
  Receive Date: 20100428
  Receipt Date: 20100421
  Transmission Date: 20101027
  Serious: Yes (Other)
  Sender: FDA-Public Use
  Company Number: IT-ABBOTT-10P-083-0639936-00

PATIENT
  Sex: Female

DRUGS (1)
  1. FULCROSUPRA [Suspect]
     Indication: DYSLIPIDAEMIA
     Route: 048
     Dates: start: 20091201, end: 20100207

REACTIONS (3)
  - ALANINE AMINOTRANSFERASE INCREASED [None]
  - ASPARTATE AMINOTRANSFERASE INCREASED [None]
  - BLOOD LACTATE DEHYDROGENASE INCREASED [None]
